FAERS Safety Report 7584931-X (Version None)
Quarter: 2011Q2

REPORT INFORMATION
  Report Type: 
  Country: None (occurrence: None)
  Receive Date: 20110630
  Receipt Date: 20110615
  Transmission Date: 20111010
  Serious: Yes (Other)
  Sender: FDA-Public Use
  Company Number: DE-ACTELION-A-US2011-51011

PATIENT

DRUGS (12)
  1. HYDROXYCHLOROQUINE SULFATE [Concomitant]
  2. LOSARTAN POTASSIUM [Concomitant]
  3. VENTAVIS [Suspect]
     Indication: PRODUCT USED FOR UNKNOWN INDICATION
     Dosage: UNK
     Route: 055
     Dates: start: 20110612
  4. ASPIRIN [Concomitant]
  5. ACETAMINOPHEN [Concomitant]
  6. TEMAZEPAM [Concomitant]
  7. CARBAMAZEPINE [Concomitant]
  8. ALBUTEROL [Concomitant]
  9. SERTRALINE [Concomitant]
  10. LAMOTRIGINE [Concomitant]
  11. PROCHLORPERAZIN [Concomitant]
  12. ADALAT CC [Concomitant]

REACTIONS (1)
  - PETIT MAL EPILEPSY [None]
